FAERS Safety Report 18008629 (Version 19)
Quarter: 2025Q1

REPORT INFORMATION
  Report Type: Report from Study
  Country: BR (occurrence: BR)
  Receive Date: 20200710
  Receipt Date: 20250117
  Transmission Date: 20250408
  Serious: Yes (Hospitalization, Other)
  Sender: GLAXOSMITHKLINE
  Company Number: BR-GLAXOSMITHKLINE-BR2019AMR213926

PATIENT

DRUGS (5)
  1. BELIMUMAB [Suspect]
     Active Substance: BELIMUMAB
     Indication: Systemic lupus erythematosus
     Dates: start: 20150410, end: 20240402
  2. BELIMUMAB [Suspect]
     Active Substance: BELIMUMAB
     Dosage: 760 MG, Q4W (3X120MG AND 1X400MG)
  3. BELIMUMAB [Suspect]
     Active Substance: BELIMUMAB
     Dates: start: 20150410
  4. HYDROXYCHLOROQUINE [Concomitant]
     Active Substance: HYDROXYCHLOROQUINE
     Indication: Product used for unknown indication
  5. PREDNISONE [Concomitant]
     Active Substance: PREDNISONE
     Indication: Product used for unknown indication

REACTIONS (12)
  - Dependence [Recovered/Resolved]
  - Psychotic disorder [Recovered/Resolved]
  - Hospitalisation [Unknown]
  - Pneumonia [Unknown]
  - Weight increased [Unknown]
  - Eye allergy [Unknown]
  - Underdose [Unknown]
  - Inappropriate schedule of product administration [Unknown]
  - Circumstance or information capable of leading to medication error [Unknown]
  - Product dose omission issue [Unknown]
  - Product supply issue [Unknown]
  - Inappropriate schedule of product administration [Unknown]

NARRATIVE: CASE EVENT DATE: 20210522
